FAERS Safety Report 24658888 (Version 1)
Quarter: 2024Q4

REPORT INFORMATION
  Report Type: Spontaneous
  Country: US (occurrence: None)
  Receive Date: 20241124
  Receipt Date: 20241124
  Transmission Date: 20250114
  Serious: Yes (Hospitalization)
  Sender: Public
  Company Number: None

PATIENT
  Sex: Female

DRUGS (15)
  1. DEVICE [Suspect]
     Active Substance: DEVICE
     Indication: Laryngeal cancer
     Dosage: FREQ: SWISH AND EXPEL OR SWALLOW 5-10 ML, 4-6 TIMES DAILY AS PRESCRIBED FOR THE MANAGEMENT OF ORAL M
     Route: 048
  2. OXYCODONE [Suspect]
     Active Substance: OXYCODONE
  3. CODEINE [Suspect]
     Active Substance: CODEINE
  4. DICLOFENAC [Concomitant]
     Active Substance: DICLOFENAC
  5. FLUTICASONE [Concomitant]
     Active Substance: FLUTICASONE
  6. GABAPENTIN [Concomitant]
     Active Substance: GABAPENTIN
  7. ALPRAZOLAM [Concomitant]
     Active Substance: ALPRAZOLAM
  8. OMEPRAZOLE [Concomitant]
     Active Substance: OMEPRAZOLE
  9. ALBUTEROL AER HFA [Concomitant]
  10. FLUCONAZOLE [Concomitant]
     Active Substance: FLUCONAZOLE
  11. ATORVASTATIN [Concomitant]
     Active Substance: ATORVASTATIN
  12. SERTRALINE [Concomitant]
     Active Substance: SERTRALINE HYDROCHLORIDE
  13. MONTELUKAST [Concomitant]
     Active Substance: MONTELUKAST
  14. METHYLPREDNISOLONE [Concomitant]
     Active Substance: METHYLPREDNISOLONE
  15. TRELEGY ELLIPTA [Concomitant]
     Active Substance: FLUTICASONE FUROATE\UMECLIDINIUM BROMIDE\VILANTEROL TRIFENATATE

REACTIONS (1)
  - Drug hypersensitivity [None]
